FAERS Safety Report 21020148 (Version 1)
Quarter: 2022Q2

REPORT INFORMATION
  Report Type: Spontaneous
  Country: UA (occurrence: None)
  Receive Date: 20220628
  Receipt Date: 20220628
  Transmission Date: 20220720
  Serious: Yes (Hospitalization, Other)
  Sender: FDA-Public Use
  Company Number: UA-ROCHE-3123644

PATIENT
  Sex: Female

DRUGS (20)
  1. XELODA [Suspect]
     Active Substance: CAPECITABINE
     Indication: Ovarian cancer
     Dosage: 5 COURSES
     Route: 048
  2. AVASTIN [Suspect]
     Active Substance: BEVACIZUMAB
     Indication: Ovarian cancer
     Dosage: UNKNOWN. 5 COURSES
     Route: 042
     Dates: start: 20200326
  3. AVASTIN [Suspect]
     Active Substance: BEVACIZUMAB
     Dosage: UNKNOWN
     Route: 042
     Dates: start: 20200422
  4. AVASTIN [Suspect]
     Active Substance: BEVACIZUMAB
     Dosage: UNKNOWN
     Route: 042
     Dates: start: 20200603
  5. AVASTIN [Suspect]
     Active Substance: BEVACIZUMAB
     Dosage: UNKNOWN
     Route: 042
     Dates: start: 20200623
  6. AVASTIN [Suspect]
     Active Substance: BEVACIZUMAB
     Dosage: UNKNOWN
     Route: 042
     Dates: start: 20200717
  7. AVASTIN [Suspect]
     Active Substance: BEVACIZUMAB
     Dosage: RECEIVED 8 INJECTIONS ;ONGOING: UNKNOWN
     Route: 065
     Dates: start: 20200831
  8. OXALIPLATIN [Concomitant]
     Active Substance: OXALIPLATIN
     Indication: Ovarian cancer
     Dosage: 5 COURSES
  9. GEMCITABINE [Concomitant]
     Active Substance: GEMCITABINE
     Dates: start: 20200326
  10. GEMCITABINE [Concomitant]
     Active Substance: GEMCITABINE
     Dates: start: 20200422
  11. GEMCITABINE [Concomitant]
     Active Substance: GEMCITABINE
     Dates: start: 20200513
  12. GEMCITABINE [Concomitant]
     Active Substance: GEMCITABINE
     Dates: start: 20200623
  13. GEMCITABINE [Concomitant]
     Active Substance: GEMCITABINE
     Dates: start: 20200801
  14. ZOLEDRONIC ACID [Concomitant]
     Active Substance: ZOLEDRONIC ACID
     Route: 042
     Dates: start: 20200326
  15. ZOLEDRONIC ACID [Concomitant]
     Active Substance: ZOLEDRONIC ACID
     Route: 042
     Dates: start: 20200422
  16. ZOLEDRONIC ACID [Concomitant]
     Active Substance: ZOLEDRONIC ACID
     Route: 042
     Dates: start: 20200513
  17. ZOLEDRONIC ACID [Concomitant]
     Active Substance: ZOLEDRONIC ACID
     Route: 042
     Dates: start: 20200603
  18. ZOLEDRONIC ACID [Concomitant]
     Active Substance: ZOLEDRONIC ACID
     Route: 042
     Dates: start: 20200623
  19. ZOLEDRONIC ACID [Concomitant]
     Active Substance: ZOLEDRONIC ACID
     Route: 042
     Dates: start: 20200717
  20. ZOLEDRONIC ACID [Concomitant]
     Active Substance: ZOLEDRONIC ACID
     Dosage: RECEIVED 8 INJECTIONS
     Route: 042
     Dates: start: 20200831

REACTIONS (9)
  - Disease recurrence [Not Recovered/Not Resolved]
  - Anaemia [Not Recovered/Not Resolved]
  - Autonomic nervous system imbalance [Not Recovered/Not Resolved]
  - Asthenia [Not Recovered/Not Resolved]
  - Effusion [Unknown]
  - Pleurodesis [Unknown]
  - Metastases to peritoneum [Unknown]
  - Ascites [Unknown]
  - Off label use [Unknown]
